FAERS Safety Report 22210797 (Version 1)
Quarter: 2023Q2

REPORT INFORMATION
  Report Type: Report from Study
  Country: US (occurrence: US)
  Receive Date: 20230414
  Receipt Date: 20230414
  Transmission Date: 20230722
  Serious: Yes (Other)
  Sender: FDA-Public Use
  Company Number: US-TEVA-2023-US-2876367

PATIENT
  Age: 71 Year
  Sex: Female

DRUGS (1)
  1. AUSTEDO [Suspect]
     Active Substance: DEUTETRABENAZINE
     Indication: Tardive dyskinesia
     Route: 065
     Dates: start: 20230102

REACTIONS (8)
  - Illness [Unknown]
  - Nausea [Unknown]
  - Insomnia [Unknown]
  - Abdominal discomfort [Unknown]
  - Retching [Unknown]
  - Anxiety [Unknown]
  - Vomiting [Unknown]
  - Feeling jittery [Unknown]

NARRATIVE: CASE EVENT DATE: 20230101
